FAERS Safety Report 6822231-3 (Version None)
Quarter: 2010Q3

REPORT INFORMATION
  Report Type: 
  Country: None (occurrence: None)
  Receive Date: 20100708
  Receipt Date: 20100701
  Transmission Date: 20110219
  Serious: Yes (Hospitalization)
  Sender: FDA-Public Use
  Company Number: GB-NOVOPROD-307338

PATIENT
  Sex: Male
  Weight: 83.9 kg

DRUGS (4)
  1. NOVORAPID FLEXPEN [Suspect]
     Indication: TYPE 1 DIABETES MELLITUS
     Dosage: 38 IU, QD (14+12+12)
     Route: 058
     Dates: start: 20080221
  2. NOVORAPID FLEXPEN [Suspect]
     Dosage: 46 IU, QD (18+16+12)
     Route: 058
  3. LEVEMIR [Suspect]
     Indication: TYPE 1 DIABETES MELLITUS
     Dosage: 20 IU, QD
     Route: 058
     Dates: start: 20051125
  4. LEVEMIR [Suspect]
     Dosage: 22 IU, QD
     Route: 058

REACTIONS (2)
  - BLOOD GLUCOSE INCREASED [None]
  - LOWER RESPIRATORY TRACT INFECTION [None]
